FAERS Safety Report 13367948 (Version 1)
Quarter: 2017Q1

REPORT INFORMATION
  Report Type: Spontaneous
  Country: US (occurrence: US)
  Receive Date: 20170323
  Receipt Date: 20170323
  Transmission Date: 20170429
  Serious: Yes (Other)
  Sender: FDA-Public Use
  Company Number: None

PATIENT
  Age: 45 Year
  Sex: Female

DRUGS (2)
  1. TACROLIMUS 0.5MG [Suspect]
     Active Substance: TACROLIMUS
     Indication: HEART TRANSPLANT
     Dosage: 4 CAPS QAM+ 5 CAPS QHS PO
     Route: 048
     Dates: start: 20170211
  2. MYCOPHENOLIC 360 MG [Suspect]
     Active Substance: MYCOPHENOLIC ACID
     Indication: HEART TRANSPLANT
     Route: 048
     Dates: start: 20170211

REACTIONS (2)
  - Transplant rejection [None]
  - Drug dose omission [None]

NARRATIVE: CASE EVENT DATE: 201703
